FAERS Safety Report 8642798 (Version 5)
Quarter: 2015Q2

REPORT INFORMATION
  Report Type: Spontaneous
  Country: US (occurrence: US)
  Receive Date: 20120629
  Receipt Date: 20150601
  Transmission Date: 20150821
  Serious: Yes (Hospitalization, Other)
  Sender: FDA-Public Use
  Company Number: US-SANOFI-AVENTIS-2012SA044780

PATIENT
  Age: 67 Year
  Sex: Male
  Weight: 93 kg

DRUGS (27)
  1. PLAVIX [Suspect]
     Active Substance: CLOPIDOGREL BISULFATE
     Indication: ANGIOPLASTY
     Route: 048
     Dates: start: 20120102, end: 20120402
  2. DIAZEPAM. [Concomitant]
     Active Substance: DIAZEPAM
  3. SYNTHROID [Concomitant]
     Active Substance: LEVOTHYROXINE SODIUM
     Indication: HYPOTHYROIDISM
  4. AMIODARONE [Concomitant]
     Active Substance: AMIODARONE
     Route: 048
  5. VITAMIN D3 [Concomitant]
     Active Substance: CHOLECALCIFEROL
  6. COUMADIN [Concomitant]
     Active Substance: WARFARIN SODIUM
     Dates: start: 1994, end: 2011
  7. ATORVASTATIN [Concomitant]
     Active Substance: ATORVASTATIN
  8. PLAVIX [Suspect]
     Active Substance: CLOPIDOGREL BISULFATE
     Indication: IMPLANTABLE DEFIBRILLATOR INSERTION
     Route: 048
     Dates: start: 20120102, end: 20120402
  9. ASPIRIN. [Suspect]
     Active Substance: ASPIRIN
     Indication: PRODUCT USED FOR UNKNOWN INDICATION
  10. VICODIN [Suspect]
     Active Substance: ACETAMINOPHEN\HYDROCODONE BITARTRATE
     Indication: PRODUCT USED FOR UNKNOWN INDICATION
     Route: 065
     Dates: start: 201008
  11. COREG [Concomitant]
     Active Substance: CARVEDILOL
  12. HYDROCHLOROTHIAZIDE. [Concomitant]
     Active Substance: HYDROCHLOROTHIAZIDE
  13. SYNTHROID [Concomitant]
     Active Substance: LEVOTHYROXINE SODIUM
     Indication: HYPOTHYROIDISM
  14. PLAVIX [Suspect]
     Active Substance: CLOPIDOGREL BISULFATE
     Indication: CORONARY ARTERY DISEASE
     Route: 048
     Dates: start: 20120102, end: 20120402
  15. AMBIEN [Suspect]
     Active Substance: ZOLPIDEM TARTRATE
     Indication: PRODUCT USED FOR UNKNOWN INDICATION
     Route: 048
     Dates: start: 201009, end: 20120411
  16. ASPIRIN. [Suspect]
     Active Substance: ASPIRIN
     Indication: PRODUCT USED FOR UNKNOWN INDICATION
     Dates: start: 201112
  17. CRESTOR [Concomitant]
     Active Substance: ROSUVASTATIN CALCIUM
     Indication: HYPERLIPIDAEMIA
  18. NEURONTIN [Concomitant]
     Active Substance: GABAPENTIN
     Indication: NEUROPATHY PERIPHERAL
  19. CENTRUM SILVER [Concomitant]
     Active Substance: VITAMINS
  20. VALIUM [Concomitant]
     Active Substance: DIAZEPAM
     Route: 048
  21. GLUCOSAMINE [Concomitant]
     Active Substance: GLUCOSAMINE
     Route: 048
  22. AVODART [Concomitant]
     Active Substance: DUTASTERIDE
     Indication: BENIGN PROSTATIC HYPERPLASIA
  23. ZESTRIL [Concomitant]
     Active Substance: LISINOPRIL
     Route: 048
  24. ASPIRIN. [Suspect]
     Active Substance: ASPIRIN
     Indication: PRODUCT USED FOR UNKNOWN INDICATION
  25. ASPIRIN. [Suspect]
     Active Substance: ASPIRIN
     Indication: PRODUCT USED FOR UNKNOWN INDICATION
     Dates: start: 199001, end: 1994
  26. COREG [Concomitant]
     Active Substance: CARVEDILOL
  27. COUMADIN [Concomitant]
     Active Substance: WARFARIN SODIUM
     Dates: start: 198906, end: 199001

REACTIONS (25)
  - Fall [Recovered/Resolved]
  - Concussion [Unknown]
  - Nausea [Unknown]
  - Anxiety [Unknown]
  - Frustration [Unknown]
  - Myocardial infarction [Unknown]
  - Myoclonic epilepsy [Unknown]
  - Insomnia [Unknown]
  - Subarachnoid haemorrhage [Recovered/Resolved]
  - Fatigue [Unknown]
  - Headache [Unknown]
  - Laceration [Unknown]
  - Haematoma [Recovered/Resolved]
  - Cerebellar haemorrhage [Unknown]
  - Pain [Unknown]
  - Contusion [Recovered/Resolved]
  - Contusion [Unknown]
  - Cerebral haemorrhage [Unknown]
  - Cerebral haematoma [Unknown]
  - Discomfort [Unknown]
  - Cervical vertebral fracture [Recovered/Resolved]
  - Rib fracture [Recovered/Resolved]
  - Amnesia [Unknown]
  - Depression [Unknown]
  - Emotional distress [Unknown]

NARRATIVE: CASE EVENT DATE: 20120403
